FAERS Safety Report 10166903 (Version 2)
Quarter: 2014Q3

REPORT INFORMATION
  Report Type: Spontaneous
  Country: CA (occurrence: None)
  Receive Date: 20140508
  Receipt Date: 20140820
  Transmission Date: 20150326
  Serious: Yes (Hospitalization)
  Sender: FDA-Public Use
  Company Number: VAL_03094_2014

PATIENT
  Age: 93 Year
  Sex: Male

DRUGS (10)
  1. PANTOPRAZOLE [Suspect]
     Active Substance: PANTOPRAZOLE SODIUM
     Indication: GASTROINTESTINAL HAEMORRHAGE
     Dosage: UNTIL NOT CONTINUING
  2. TELMISARTAN. [Suspect]
     Active Substance: TELMISARTAN
     Indication: CORONARY ARTERY DISEASE
  3. PREDNISOLONE. [Concomitant]
     Active Substance: PREDNISOLONE
  4. ESCITALOPRAM [Suspect]
     Active Substance: ESCITALOPRAM OXALATE
     Indication: DEPRESSION
     Dosage: UNTIL NOT CONTINUING
  5. METOPROLOL [Suspect]
     Active Substance: METOPROLOL
     Indication: MYOCARDIAL INFARCTION
  6. TAMSULOSIN [Concomitant]
     Active Substance: TAMSULOSIN
  7. METOPROLOL [Suspect]
     Active Substance: METOPROLOL
     Indication: CORONARY ARTERY DISEASE
  8. LORAZEPAM. [Suspect]
     Active Substance: LORAZEPAM
     Indication: INSOMNIA
     Dosage: BEDTIME
  9. LOPERAMIDE [Concomitant]
     Active Substance: LOPERAMIDE
  10. PREDNISONE. [Suspect]
     Active Substance: PREDNISONE
     Indication: PEMPHIGOID

REACTIONS (11)
  - Fall [None]
  - Vitamin B12 deficiency [None]
  - Dizziness [None]
  - Fatigue [None]
  - Diarrhoea [None]
  - Mobility decreased [None]
  - Orthostatic hypotension [None]
  - Hyponatraemia [None]
  - Affective disorder [None]
  - Somnolence [None]
  - Vitamin D deficiency [None]
